FAERS Safety Report 9493819 (Version 3)
Quarter: 2014Q2

REPORT INFORMATION
  Report Type: Spontaneous
  Country: JP (occurrence: JP)
  Receive Date: 20130902
  Receipt Date: 20140414
  Transmission Date: 20141212
  Serious: Yes (Death, Hospitalization)
  Sender: FDA-Public Use
  Company Number: PHHY2013JP094987

PATIENT
  Age: 82 Year
  Sex: Male

DRUGS (3)
  1. ZOMETA [Suspect]
     Indication: METASTASES TO BONE
     Dosage: UNK UKN, UNK
     Route: 042
     Dates: start: 200708
  2. ZOMETA [Suspect]
     Dosage: 56 MG, UNK
     Dates: end: 200810
  3. ANTIBIOTICS [Concomitant]
     Dosage: UNK UKN, UNK
     Dates: end: 20100628

REACTIONS (18)
  - Metastases to bone [Fatal]
  - Malignant neoplasm progression [Fatal]
  - Osteonecrosis of jaw [Unknown]
  - Osteomyelitis [Not Recovered/Not Resolved]
  - Gingival swelling [Unknown]
  - Gingivitis [Recovering/Resolving]
  - Erythema [Unknown]
  - Toothache [Unknown]
  - Exposed bone in jaw [Unknown]
  - Dysphagia [Unknown]
  - Aphagia [Unknown]
  - Tooth loss [Unknown]
  - Primary sequestrum [Unknown]
  - Lymphadenopathy [Unknown]
  - Sinus perforation [Unknown]
  - Rhinorrhoea [Unknown]
  - Oropharyngeal swelling [Unknown]
  - Tooth abscess [Unknown]
